FAERS Safety Report 5800051-6 (Version None)
Quarter: 2008Q3

REPORT INFORMATION
  Report Type: 
  Country: None (occurrence: None)
  Receive Date: 20080702
  Receipt Date: 20080702
  Transmission Date: 20090109
  Serious: Yes (Hospitalization)
  Sender: FDA-Public Use
  Company Number: None

PATIENT
  Age: 60 Year
  Sex: Male

DRUGS (7)
  1. DIGITEK 0.25MG BERTEK [Suspect]
     Indication: CARDIAC DISORDER
     Dosage: 1 TABLET BY MOUTH ONCE DAILY, FROM 5/19/06 TILL TODAY
     Route: 048
     Dates: start: 20060519
  2. POTASSIUM CHLORIDE [Concomitant]
  3. LISINOPRIL [Concomitant]
  4. XANAX [Concomitant]
  5. QUINIDINE HCL [Concomitant]
  6. FUROSEMIDE [Concomitant]
  7. MEXITIL [Concomitant]

REACTIONS (4)
  - CARDIAC OUTPUT DECREASED [None]
  - CARDIOACTIVE DRUG LEVEL INCREASED [None]
  - DYSPNOEA [None]
  - UNEVALUABLE EVENT [None]
